FAERS Safety Report 9775904 (Version 2)
Quarter: 2013Q4

REPORT INFORMATION
  Report Type: Spontaneous
  Country: JP (occurrence: None)
  Receive Date: 20131219
  Receipt Date: 20131220
  Transmission Date: 20140711
  Serious: Yes (Life-Threatening)
  Sender: FDA-Public Use
  Company Number: AE-SPE-2013-030

PATIENT
  Age: 12 Year
  Sex: Male

DRUGS (1)
  1. MEIACT MS [Suspect]
     Indication: COUGH
     Route: 048
     Dates: start: 20131014, end: 20131014

REACTIONS (1)
  - Anaphylactic shock [None]
